FAERS Safety Report 8004000-4 (Version None)
Quarter: 2011Q4

REPORT INFORMATION
  Report Type: 
  Country: None (occurrence: None)
  Receive Date: 20111222
  Receipt Date: 20111206
  Transmission Date: 20120403
  Serious: Yes (Death)
  Sender: FDA-Public Use
  Company Number: JP-ROCHE-1000599

PATIENT
  Sex: Female

DRUGS (11)
  1. VALGANCICLOVIR [Suspect]
     Route: 048
     Dates: start: 20110730, end: 20110808
  2. SILICONE OIL [Concomitant]
     Route: 031
     Dates: start: 20110725
  3. ZOVIRAX [Concomitant]
     Route: 041
     Dates: start: 20110809, end: 20110822
  4. FUNGUARD [Concomitant]
  5. VANCOMYCIN HYCHLORIDE [Suspect]
     Indication: PRODUCT USED FOR UNKNOWN INDICATION
     Dates: end: 20110905
  6. STEROID EYE DROPS [Concomitant]
     Route: 031
     Dates: start: 20110615
  7. FLUCONAZOLE [Concomitant]
     Indication: PNEUMONIA
  8. VALGANCICLOVIR [Suspect]
     Indication: CYTOMEGALOVIRUS CHORIORETINITIS
     Route: 048
     Dates: start: 20110809, end: 20110822
  9. VALGANCICLOVIR [Suspect]
     Route: 048
     Dates: start: 20110823, end: 20110829
  10. VALGANCICLOVIR [Suspect]
     Route: 048
     Dates: start: 20110830, end: 20110902
  11. VALTREX [Suspect]
     Indication: PRODUCT USED FOR UNKNOWN INDICATION
     Route: 048
     Dates: start: 20110823, end: 20110904

REACTIONS (1)
  - BONE MARROW FAILURE [None]
